FAERS Safety Report 8438810-6 (Version None)
Quarter: 2012Q2

REPORT INFORMATION
  Report Type: 
  Country: None (occurrence: None)
  Receive Date: 20120606
  Receipt Date: 20120531
  Transmission Date: 20120825
  Serious: Yes (Death)
  Sender: FDA-Public Use
  Company Number: 2012SP022887

PATIENT
  Age: 54 Year
  Sex: Female

DRUGS (4)
  1. ZOLOFT [Concomitant]
  2. VICTRELIS [Suspect]
     Dosage: 800 MG; TID; PO
     Route: 048
  3. PEG-INTRON [Suspect]
     Indication: HEPATITIS C
     Dosage: 80 MCG; QW; SC
     Route: 058
     Dates: start: 20120330
  4. RIBAVIRIN [Suspect]
     Indication: HEPATITIS C
     Dates: start: 20120330

REACTIONS (1)
  - DEATH [None]
